FAERS Safety Report 5504567-1 (Version None)
Quarter: 2007Q4

REPORT INFORMATION
  Report Type: 
  Country: None (occurrence: None)
  Receive Date: 20071031
  Receipt Date: 20071016
  Transmission Date: 20080405
  Serious: Yes (Other)
  Sender: FDA-Public Use
  Company Number: 2007S1010668

PATIENT
  Age: 37 Year
  Sex: Male
  Weight: 125 kg

DRUGS (2)
  1. FUROSEMIDE [Suspect]
     Indication: DRUG USE FOR UNKNOWN INDICATION
     Dosage: 40 MG ORAL
     Route: 048
     Dates: start: 20071002, end: 20071003
  2. TINZAPARIN [Concomitant]

REACTIONS (6)
  - PRURITUS [None]
  - RASH ERYTHEMATOUS [None]
  - RASH PAPULAR [None]
  - RASH PUSTULAR [None]
  - SKIN BURNING SENSATION [None]
  - VASCULITIC RASH [None]
